FAERS Safety Report 22690702 (Version 2)
Quarter: 2024Q3

REPORT INFORMATION
  Report Type: Spontaneous
  Country: FR (occurrence: FR)
  Receive Date: 20230711
  Receipt Date: 20240724
  Transmission Date: 20241016
  Serious: Yes (Hospitalization, Other)
  Sender: AUROBINDO
  Company Number: FR-SA-SAC20230424000177

PATIENT
  Age: 42 Year
  Sex: Female

DRUGS (6)
  1. LEVETIRACETAM [Suspect]
     Active Substance: LEVETIRACETAM
     Indication: Epilepsy
     Dosage: UNK
     Route: 065
  2. CHLORMADINONE ACETATE [Suspect]
     Active Substance: CHLORMADINONE ACETATE
     Indication: Uterine leiomyoma
     Dosage: 10 MILLIGRAM (10 MG, 21/28D)
     Route: 065
     Dates: start: 20050217, end: 20060621
  3. CHLORMADINONE ACETATE [Suspect]
     Active Substance: CHLORMADINONE ACETATE
     Dosage: UNK
     Route: 065
     Dates: start: 20060622, end: 20140424
  4. CHLORMADINONE ACETATE [Suspect]
     Active Substance: CHLORMADINONE ACETATE
     Dosage: UNK
     Route: 065
     Dates: start: 2014, end: 20140930
  5. DOLIPRANE [Concomitant]
     Active Substance: ACETAMINOPHEN
     Indication: Product used for unknown indication
     Dosage: UNK
     Route: 065
  6. TRAMADOL [Concomitant]
     Active Substance: TRAMADOL\TRAMADOL HYDROCHLORIDE
     Indication: Product used for unknown indication
     Dosage: UNK
     Route: 065

REACTIONS (12)
  - Dyskinesia [Unknown]
  - Epilepsy [Unknown]
  - Meningioma [Unknown]
  - Decreased eye contact [Unknown]
  - Asthenia [Unknown]
  - Headache [Unknown]
  - Deafness bilateral [Unknown]
  - Dizziness [Unknown]
  - Aggression [Unknown]
  - Nausea [Unknown]
  - Vomiting [Unknown]
  - Fatigue [Unknown]

NARRATIVE: CASE EVENT DATE: 20091210
